FAERS Safety Report 4574982-1 (Version None)
Quarter: 2005Q1

REPORT INFORMATION
  Report Type: 
  Country: None (occurrence: None)
  Receive Date: 20050208
  Receipt Date: 20050128
  Transmission Date: 20050727
  Serious: Yes (Life-Threatening)
  Sender: FDA-Public Use
  Company Number: NO-MERCK-0502NOR00007

PATIENT
  Age: 65 Year
  Sex: Female

DRUGS (9)
  1. VIOXX [Suspect]
     Indication: RHEUMATOID ARTHRITIS
     Route: 048
     Dates: start: 20020801, end: 20041015
  2. ETIDRONATE DISODIUM [Concomitant]
     Indication: OSTEOPOROSIS
     Route: 048
     Dates: start: 20010101
  3. METHOTREXATE [Concomitant]
     Route: 065
     Dates: start: 20010101
  4. FOLIC ACID [Concomitant]
     Route: 065
     Dates: start: 20010101
  5. CYANOCOBALAMIN [Concomitant]
     Indication: VITAMIN B12 DEFICIENCY
     Route: 065
     Dates: start: 20010101
  6. ESOMEPRAZOLE MAGNESIUM [Concomitant]
     Route: 048
     Dates: start: 20020101
  7. ATORVASTATIN CALCIUM [Concomitant]
     Route: 048
     Dates: start: 20041001
  8. ZOPICLONE [Concomitant]
     Route: 065
     Dates: start: 19970101
  9. BUMETANIDE [Concomitant]
     Indication: CARDIAC FAILURE CONGESTIVE
     Route: 048
     Dates: start: 20041001

REACTIONS (5)
  - ATRIOVENTRICULAR BLOCK COMPLETE [None]
  - CORONARY ARTERY STENOSIS [None]
  - HYPOTENSION [None]
  - LUNG INFILTRATION [None]
  - MYOCARDIAL INFARCTION [None]
